FAERS Safety Report 8868242 (Version 1)
Quarter: 2012Q4

REPORT INFORMATION
  Report Type: 
  Country: US (occurrence: US)
  Receive Date: 20121025
  Receipt Date: 20121025
  Transmission Date: 20130627
  Serious: No
  Sender: FDA-Public Use
  Company Number: US-AMGEN-USASP2012019491

PATIENT
  Age: 56 Year
  Sex: Female

DRUGS (6)
  1. ENBREL [Suspect]
     Indication: PRODUCT USED FOR UNKNOWN INDICATION
     Dosage: 50 mg, qwk
     Route: 058
  2. B COMPLEX                          /00212701/ [Concomitant]
     Dosage: 12.5 mg, UNK
  3. TRAMADOL HCL [Concomitant]
     Dosage: 50 mg, UNK
  4. CALCIUM 600 [Concomitant]
  5. BONIVA [Concomitant]
     Dosage: 2.5 mg, UNK
  6. AMBIEN CR [Concomitant]
     Dosage: 12.5 mg, UNK

REACTIONS (1)
  - Upper respiratory tract infection [Recovered/Resolved]
